FAERS Safety Report 18687822 (Version 2)
Quarter: 2021Q1

REPORT INFORMATION
  Report Type: Spontaneous
  Country: US (occurrence: US)
  Receive Date: 20201231
  Receipt Date: 20210111
  Transmission Date: 20210419
  Serious: Yes (Other)
  Sender: FDA-Public Use
  Company Number: US-AUROBINDO-AUR-APL-2020-063858

PATIENT
  Age: 73 Year
  Sex: Female

DRUGS (1)
  1. OXYCODONE [Suspect]
     Active Substance: OXYCODONE
     Indication: PRODUCT USED FOR UNKNOWN INDICATION
     Dosage: 10 MILLIGRAM, FOUR TIMES/DAY
     Route: 065

REACTIONS (3)
  - Constipation [Recovering/Resolving]
  - Oesophageal motility disorder [Recovering/Resolving]
  - Oesophageal achalasia [Recovering/Resolving]
